FAERS Safety Report 9011876 (Version 1)
Quarter: 2012Q4

REPORT INFORMATION
  Report Type: Spontaneous
  Country: DE (occurrence: None)
  Receive Date: 20121228
  Receipt Date: 20121228
  Transmission Date: 20130627
  Serious: Yes (Hospitalization, Other)
  Sender: FDA-Public Use
  Company Number: GER/GER/12/0027099

PATIENT
  Sex: Male
  Weight: 2.4 kg

DRUGS (1)
  1. METOPROLOL (METOPROLOL) [Suspect]
     Indication: DRUG USE FOR UNKNOWN INDICATION
     Route: 064
     Dates: start: 20110909, end: 20120529

REACTIONS (6)
  - Neonatal respiratory distress syndrome [None]
  - Hypoglycaemia neonatal [None]
  - Foetal heart rate deceleration [None]
  - Hyperinsulinaemia [None]
  - Small for dates baby [None]
  - Maternal drugs affecting foetus [None]
